FAERS Safety Report 4881698-0 (Version None)
Quarter: 2005Q4

REPORT INFORMATION
  Report Type: 
  Country: None (occurrence: None)
  Receive Date: 20051201
  Receipt Date: 20050721
  Transmission Date: 20060501
  Serious: No
  Sender: FDA-Public Use
  Company Number: 2005PV000564

PATIENT
  Age: 58 Year
  Sex: Female
  Weight: 136.0791 kg

DRUGS (15)
  1. BYETTA [Suspect]
     Indication: DIABETES MELLITUS NON-INSULIN-DEPENDENT
     Dosage: 5 MCG; BID; SC
     Route: 058
     Dates: start: 20050601
  2. SYNTHROID [Concomitant]
  3. ALLEGRA [Concomitant]
  4. SINGULAIR [Concomitant]
  5. ACCUPRIL [Concomitant]
  6. HYZAAR [Concomitant]
  7. GLYBURIDE [Concomitant]
  8. METFORMIN HCL [Concomitant]
  9. NEXIUM [Concomitant]
  10. ASACOL [Concomitant]
  11. POTASSIUM CHLORIDE [Concomitant]
  12. LASIX [Concomitant]
  13. COLACE [Concomitant]
  14. OSCAL [Concomitant]
  15. ADVAIR DISKUS 100/50 [Concomitant]

REACTIONS (3)
  - BLOOD GLUCOSE INCREASED [None]
  - CELLULITIS [None]
  - PAIN IN EXTREMITY [None]
